FAERS Safety Report 8065826-4 (Version None)
Quarter: 2012Q1

REPORT INFORMATION
  Report Type: 
  Country: None (occurrence: None)
  Receive Date: 20120124
  Receipt Date: 20120119
  Transmission Date: 20120608
  Serious: Yes (Death, Other)
  Sender: FDA-Public Use
  Company Number: US-BAYER-200943343NA

PATIENT
  Age: 59 Year
  Sex: Male
  Weight: 96 kg

DRUGS (31)
  1. NORVASC [Concomitant]
     Dosage: 5 MG, BID
     Route: 048
  2. TOPROL-XL [Concomitant]
     Dosage: 100 MG, UNK
     Route: 048
  3. PREDNISONE TAB [Concomitant]
     Route: 048
  4. EPHEDRINE SUL CAP [Concomitant]
     Dosage: UNK
     Route: 042
     Dates: start: 20050922
  5. TRASYLOL [Suspect]
     Indication: AORTIC VALVE REPLACEMENT
     Route: 042
     Dates: start: 20050922
  6. METHOTREXATE [Concomitant]
     Dosage: 25 MG, BID
     Route: 048
  7. NITROGLYCERIN [Concomitant]
     Dosage: UNK
     Route: 042
     Dates: start: 20050922
  8. NAFCILLIN [Concomitant]
     Indication: ENDOCARDITIS
  9. COUMADIN [Concomitant]
     Dosage: 5 MG, UNK
     Route: 048
  10. VICODIN [Concomitant]
     Dosage: UNK
     Route: 048
  11. LASIX [Concomitant]
     Dosage: 60 MG, UNK
     Route: 042
     Dates: start: 20050922
  12. VANCOMYCIN [Concomitant]
     Indication: BACTERAEMIA
     Dosage: UNK
     Dates: end: 20050912
  13. LISINOPRIL [Concomitant]
     Dosage: 5 MG, BID
     Route: 048
  14. ACETAMINOPHEN [Concomitant]
     Dosage: UNK
     Route: 048
  15. EPINEPHRINE [Concomitant]
     Dosage: UNK
     Route: 042
     Dates: start: 20050922
  16. GENTAMICIN [Concomitant]
     Indication: BACTERAEMIA
     Dosage: UNK
     Dates: end: 20050920
  17. ENBREL [Concomitant]
     Dosage: UNK
     Route: 058
     Dates: start: 20030101
  18. AMIODARONE HCL [Concomitant]
     Dosage: 150 MG, UNK
     Route: 042
     Dates: start: 20050922
  19. GENTAMICIN [Concomitant]
     Indication: ENDOCARDITIS
  20. LOVENOX [Concomitant]
     Dosage: 1 MG/KG, BID
     Route: 058
     Dates: start: 20050816, end: 20050818
  21. PROTAMINE SULFATE [Concomitant]
     Dosage: 50 MG, UNK
     Route: 042
     Dates: start: 20050922
  22. PRECEDEX [Concomitant]
     Dosage: UNK
     Route: 042
     Dates: start: 20050922
  23. FORANE [Concomitant]
     Dosage: INHALED
     Dates: start: 20050922
  24. TRASYLOL [Suspect]
     Indication: MITRAL VALVE REPLACEMENT
  25. HEPARIN [Concomitant]
     Dosage: 29,000 U
     Route: 042
     Dates: start: 20050922
  26. FENTANYL [Concomitant]
     Dosage: 15 ML, UNK
     Route: 042
     Dates: start: 20050922
  27. MIDAZOLAM [Concomitant]
     Dosage: 10 MG, UNK
     Route: 042
     Dates: start: 20050922
  28. PLATELETS [Concomitant]
     Dosage: 490 ML, UNK
     Route: 042
     Dates: start: 20050922
  29. VANCOMYCIN [Concomitant]
     Indication: ENDOCARDITIS
  30. NAFCILLIN [Concomitant]
     Indication: BACTERAEMIA
     Dosage: UNK
     Dates: start: 20050910
  31. DIPRIVAN [Concomitant]
     Dosage: 50 MG, UNK
     Route: 042
     Dates: start: 20050922

REACTIONS (34)
  - DEATH [None]
  - HAEMODIALYSIS [None]
  - RENAL FAILURE CHRONIC [None]
  - PULMONARY HYPERTENSION [None]
  - NEPHROSCLEROSIS [None]
  - MENTAL DISORDER [None]
  - HYPOTENSION [None]
  - RESPIRATORY FAILURE [None]
  - GASTROINTESTINAL HAEMORRHAGE [None]
  - PAIN [None]
  - UNEVALUABLE EVENT [None]
  - HYPOKALAEMIA [None]
  - COR PULMONALE [None]
  - ANAEMIA HAEMOLYTIC AUTOIMMUNE [None]
  - RHEUMATIC HEART DISEASE [None]
  - MULTI-ORGAN FAILURE [None]
  - FLUID OVERLOAD [None]
  - PNEUMONIA KLEBSIELLA [None]
  - THROMBOSIS IN DEVICE [None]
  - DIFFUSE ALVEOLAR DAMAGE [None]
  - HAEMOSIDEROSIS [None]
  - RENAL FAILURE [None]
  - RENAL FAILURE ACUTE [None]
  - CARDIAC FAILURE CONGESTIVE [None]
  - PLATELET COUNT INCREASED [None]
  - INJURY [None]
  - ANXIETY [None]
  - EMOTIONAL DISTRESS [None]
  - OBSTRUCTIVE UROPATHY [None]
  - CEREBRAL SMALL VESSEL ISCHAEMIC DISEASE [None]
  - AGITATION [None]
  - LACUNAR INFARCTION [None]
  - SUBCUTANEOUS ABSCESS [None]
  - RIGHT VENTRICULAR FAILURE [None]
